FAERS Safety Report 6400272-8 (Version None)
Quarter: 2009Q4

REPORT INFORMATION
  Report Type: 
  Country: None (occurrence: None)
  Receive Date: 20091014
  Receipt Date: 20091009
  Transmission Date: 20100525
  Serious: Yes (Other)
  Sender: FDA-Public Use
  Company Number: IN-MERCK-0910USA01212

PATIENT
  Age: 48 Year
  Sex: Female
  Weight: 50 kg

DRUGS (3)
  1. JANUMET [Suspect]
     Indication: DIABETES MELLITUS INADEQUATE CONTROL
     Route: 048
     Dates: start: 20090905, end: 20090911
  2. JANUMET [Suspect]
     Route: 048
     Dates: start: 20090912, end: 20091007
  3. INSULIN GLARGINE [Concomitant]
     Indication: TYPE 2 DIABETES MELLITUS
     Route: 058

REACTIONS (3)
  - CRYING [None]
  - DEPRESSIVE SYMPTOM [None]
  - SUICIDAL IDEATION [None]
